FAERS Safety Report 7859781-7 (Version None)
Quarter: 2011Q4

REPORT INFORMATION
  Report Type: 
  Country: None (occurrence: None)
  Receive Date: 20111026
  Receipt Date: 20111026
  Transmission Date: 20120403
  Serious: Yes (Hospitalization)
  Sender: FDA-Public Use
  Company Number: None

PATIENT
  Sex: Male
  Weight: 89.8 kg

DRUGS (2)
  1. ERLOTINIB HYDROCHLORIDE [Suspect]
     Indication: NON-SMALL CELL LUNG CANCER
     Dosage: 150MG QD PO
     Route: 048
     Dates: start: 20110913, end: 20111020
  2. CETUXIMAB [Suspect]
     Indication: NON-SMALL CELL LUNG CANCER
     Dosage: 250MG/M2 ONCE/WEEK IV
     Route: 042
     Dates: start: 20110913, end: 20111014

REACTIONS (4)
  - NEOPLASM PROGRESSION [None]
  - PNEUMOTHORAX [None]
  - PNEUMONIA [None]
  - NON-SMALL CELL LUNG CANCER METASTATIC [None]
